FAERS Safety Report 16056234 (Version 1)
Quarter: 2019Q2

REPORT INFORMATION
  Report Type: Spontaneous
  Country: US (occurrence: US)
  Receive Date: 20190308
  Receipt Date: 20190308
  Transmission Date: 20190711
  Serious: Yes (Hospitalization)
  Sender: FDA-Public Use
  Company Number: None

PATIENT
  Sex: Female

DRUGS (12)
  1. IMMUNE SUPP POW VIT C [Concomitant]
  2. MELATONIN TAB [Concomitant]
  3. PROTAMINE [Concomitant]
     Active Substance: PROTAMINE
  4. B6 NATURAL [Concomitant]
  5. MAALOX CHILDREN CHEW [Concomitant]
  6. VITAMIN D3 TAB [Concomitant]
  7. NORDITROPIN [Suspect]
     Active Substance: SOMATROPIN
     Indication: HYPOPITUITARISM
     Route: 058
     Dates: start: 20150820
  8. POLYETHYLENE GLYCOL [Concomitant]
     Active Substance: POLYETHYLENE GLYCOLS
  9. TYLENOL SUSP CHILDREN [Concomitant]
  10. ZINC 15 TAB [Concomitant]
  11. MAGNESIUM CAP [Concomitant]
  12. MULTIVITAMIN CHEW CHILDREN [Concomitant]

REACTIONS (1)
  - Concussion [None]
